FAERS Safety Report 11823860 (Version 1)
Quarter: 2015Q4

REPORT INFORMATION
  Report Type: Spontaneous
  Country: US (occurrence: US)
  Receive Date: 20151210
  Receipt Date: 20151210
  Transmission Date: 20160305
  Serious: Yes (Death)
  Sender: FDA-Public Use
  Company Number: US-PFIZER INC-2015428982

PATIENT
  Age: 28 Year
  Sex: Female

DRUGS (4)
  1. PREGABALIN. [Suspect]
     Active Substance: PREGABALIN
  2. RISPERIDONE. [Suspect]
     Active Substance: RISPERIDONE
  3. DIAZEPAM. [Suspect]
     Active Substance: DIAZEPAM
  4. OXYCODONE [Suspect]
     Active Substance: OXYCODONE

REACTIONS (3)
  - Cardiac arrest [Fatal]
  - Drug abuse [Fatal]
  - Respiratory arrest [Fatal]

NARRATIVE: CASE EVENT DATE: 2014
